FAERS Safety Report 6453234-9 (Version None)
Quarter: 2009Q4

REPORT INFORMATION
  Report Type: 
  Country: None (occurrence: None)
  Receive Date: 20091124
  Receipt Date: 20091112
  Transmission Date: 20100525
  Serious: Yes (Hospitalization)
  Sender: FDA-Public Use
  Company Number: DE-AMGEN-US374835

PATIENT
  Sex: Female
  Weight: 65 kg

DRUGS (6)
  1. ENBREL [Suspect]
     Indication: RHEUMATOID ARTHRITIS
     Route: 058
     Dates: start: 20090929, end: 20091027
  2. VITAMIN D3 [Concomitant]
     Route: 065
  3. CALCIUM [Concomitant]
     Route: 065
  4. PREDNISOLONE [Concomitant]
     Indication: RHEUMATOID ARTHRITIS
     Route: 048
     Dates: start: 20090901, end: 20091001
  5. PREDNISOLONE [Concomitant]
     Route: 048
     Dates: start: 20091001
  6. IBUPROFEN [Concomitant]
     Dosage: 400 MG WHEN NEEDED
     Route: 048

REACTIONS (3)
  - ATRIAL FIBRILLATION [None]
  - MYOCARDITIS [None]
  - RESPIRATORY TRACT INFECTION [None]
